FAERS Safety Report 13259106 (Version 2)
Quarter: 2018Q1

REPORT INFORMATION
  Report Type: Spontaneous
  Country: US (occurrence: US)
  Receive Date: 20170222
  Receipt Date: 20180119
  Transmission Date: 20180508
  Serious: Yes (Hospitalization, Other)
  Sender: FDA-Public Use
  Company Number: US-GLAXOSMITHKLINE-US2017GSK023460

PATIENT
  Age: 59 Year
  Sex: Female

DRUGS (11)
  1. PREDNISONE. [Concomitant]
     Active Substance: PREDNISONE
  2. ASPIRIN. [Concomitant]
     Active Substance: ASPIRIN
  3. RESTASIS [Concomitant]
     Active Substance: CYCLOSPORINE
  4. CYMBALTA [Concomitant]
     Active Substance: DULOXETINE HYDROCHLORIDE
  5. FLOVENT [Concomitant]
     Active Substance: FLUTICASONE PROPIONATE
  6. XANAX [Concomitant]
     Active Substance: ALPRAZOLAM
  7. BENLYSTA [Suspect]
     Active Substance: BELIMUMAB
     Indication: SYSTEMIC LUPUS ERYTHEMATOSUS
     Dosage: UNK UNK, CYC
     Route: 042
  8. PROAIR HFA [Concomitant]
     Active Substance: ALBUTEROL SULFATE
  9. LYRICA [Concomitant]
     Active Substance: PREGABALIN
  10. BOTOX [Concomitant]
     Active Substance: ONABOTULINUMTOXINA
  11. FLONASE [Concomitant]
     Active Substance: FLUTICASONE PROPIONATE

REACTIONS (20)
  - Mobility decreased [Unknown]
  - Joint swelling [Not Recovered/Not Resolved]
  - Asthenia [Not Recovered/Not Resolved]
  - Thrombocytopenia [Unknown]
  - Drug hypersensitivity [Not Recovered/Not Resolved]
  - Joint stiffness [Not Recovered/Not Resolved]
  - Neutropenia [Recovered/Resolved]
  - Swelling [Unknown]
  - White blood cell count decreased [Unknown]
  - Platelet count decreased [Unknown]
  - Pyrexia [Recovering/Resolving]
  - Immune system disorder [Unknown]
  - Infectious colitis [Recovered/Resolved]
  - Lymphoedema [Not Recovered/Not Resolved]
  - Oropharyngeal pain [Recovering/Resolving]
  - Fatigue [Not Recovered/Not Resolved]
  - Lymphadenopathy [Recovering/Resolving]
  - Body temperature increased [Recovering/Resolving]
  - Leukopenia [Recovered/Resolved]
  - Sinusitis [Unknown]

NARRATIVE: CASE EVENT DATE: 20170215
